FAERS Safety Report 8904413 (Version 3)
Quarter: 2013Q3

REPORT INFORMATION
  Report Type: Spontaneous
  Country: US (occurrence: US)
  Receive Date: 20121112
  Receipt Date: 20130808
  Transmission Date: 20140515
  Serious: Yes (Death, Life-Threatening, Hospitalization, Disabling, Other)
  Sender: FDA-Public Use
  Company Number: US-MERCK-1211USA003088

PATIENT
  Sex: Female
  Weight: 136.5 kg

DRUGS (2)
  1. JANUVIA [Suspect]
     Indication: TYPE 2 DIABETES MELLITUS
     Dosage: 50 MG, UNK
     Route: 048
     Dates: start: 20081010, end: 20081109
  2. JANUVIA [Suspect]
     Dosage: 100 MG, QD
     Route: 048
     Dates: start: 20090602, end: 20090708

REACTIONS (22)
  - Pancreatic carcinoma [Fatal]
  - Bile duct stent insertion [Unknown]
  - Cholecystoenterostomy [Unknown]
  - Explorative laparotomy [Unknown]
  - Gastroenterostomy [Unknown]
  - Biliary tract dilation procedure [Unknown]
  - Hip surgery [Unknown]
  - Hypertension [Not Recovered/Not Resolved]
  - Osteoarthritis [Not Recovered/Not Resolved]
  - Obesity [Not Recovered/Not Resolved]
  - Liver function test abnormal [Unknown]
  - Eosinophilia [Unknown]
  - Treatment noncompliance [Unknown]
  - Diverticulum [Unknown]
  - Iron deficiency anaemia [Unknown]
  - Surgical failure [Unknown]
  - Choledochoenterostomy [Unknown]
  - Uraemic encephalopathy [Unknown]
  - Mental status changes [Unknown]
  - Renal failure chronic [Unknown]
  - Renal failure acute [Unknown]
  - Dyslipidaemia [Unknown]
